FAERS Safety Report 4299355-0 (Version None)
Quarter: 2004Q1

REPORT INFORMATION
  Report Type: 
  Country: None (occurrence: None)
  Receive Date: 20040219
  Receipt Date: 20030925
  Transmission Date: 20041129
  Serious: No
  Sender: FDA-Public Use
  Company Number: US-GLAXOSMITHKLINE-A0427558A

PATIENT
  Age: 74 Year
  Sex: Male
  Weight: 78.6 kg

DRUGS (2)
  1. AVODART [Suspect]
     Indication: ILL-DEFINED DISORDER
     Route: 048
     Dates: start: 20030516, end: 20030523
  2. FLOMAX [Concomitant]
     Dosage: .4MG UNKNOWN
     Route: 048

REACTIONS (1)
  - GASTROINTESTINAL DISORDER [None]
